FAERS Safety Report 4653986-4 (Version None)
Quarter: 2005Q2

REPORT INFORMATION
  Report Type: 
  Country: None (occurrence: None)
  Receive Date: 20050404
  Receipt Date: 20041201
  Transmission Date: 20051028
  Serious: No
  Sender: FDA-Public Use
  Company Number: USA041284967

PATIENT
  Age: 58 Year
  Sex: Female

DRUGS (5)
  1. CYMBALTA [Suspect]
     Indication: PAIN
     Dosage: 30 MG DAY
     Dates: start: 20041101
  2. OXYCONTIN [Concomitant]
  3. KLONOPIN [Concomitant]
  4. BACLOFEN [Concomitant]
  5. ENDODAN [Concomitant]

REACTIONS (8)
  - ABDOMINAL PAIN UPPER [None]
  - CONSTIPATION [None]
  - DIZZINESS [None]
  - FATIGUE [None]
  - FEELING ABNORMAL [None]
  - FEELING HOT [None]
  - NAUSEA [None]
  - VISUAL DISTURBANCE [None]
